FAERS Safety Report 26165483 (Version 1)
Quarter: 2025Q4

REPORT INFORMATION
  Report Type: Report from Study
  Country: AE (occurrence: AE)
  Receive Date: 20251216
  Receipt Date: 20251216
  Transmission Date: 20260117
  Serious: Yes (Death, Hospitalization, Other)
  Sender: DAIICHI
  Company Number: AE-AstraZeneca-CH-01013098A

PATIENT
  Sex: Female

DRUGS (1)
  1. ENHERTU [Suspect]
     Active Substance: FAM-TRASTUZUMAB DERUXTECAN-NXKI
     Indication: Breast cancer
     Dosage: 500 MG, ONCE EVERY 3 WK
     Route: 042
     Dates: start: 202412, end: 202511

REACTIONS (1)
  - Death [Fatal]

NARRATIVE: CASE EVENT DATE: 20251201
